FAERS Safety Report 7418570-8 (Version None)
Quarter: 2011Q2

REPORT INFORMATION
  Report Type: 
  Country: None (occurrence: None)
  Receive Date: 20110415
  Receipt Date: 20110406
  Transmission Date: 20111010
  Serious: Yes (Hospitalization)
  Sender: FDA-Public Use
  Company Number: PHHY2011US28845

PATIENT
  Age: 52 Year
  Sex: Male

DRUGS (14)
  1. OMEPRAZOLE [Concomitant]
     Dosage: 40 MG DAILY
     Route: 048
     Dates: start: 20090803
  2. MAGNESIUM SULFATE [Concomitant]
     Dosage: 800 MG DAILY
     Route: 042
     Dates: start: 20100704
  3. PREDNISONE [Concomitant]
     Dosage: 5 MG/ 5 ML DAILY
     Route: 048
     Dates: start: 20080803
  4. SANDIMMUNE [Suspect]
     Indication: MOBILITY DECREASED
     Dosage: 10 MG, UNK
     Dates: start: 20100804
  5. FERROUS SULFATE W/FOLIC ACID [Concomitant]
     Dosage: 975 MG DAILY
     Dates: start: 20090803
  6. ISOSORBIDE MONONITRATE [Concomitant]
     Indication: CARDIOVASCULAR EVENT PROPHYLAXIS
     Dosage: 120 MG DAILY
     Route: 048
     Dates: start: 20090306
  7. NITROGLYCERIN [Concomitant]
     Indication: CARDIOVASCULAR EVENT PROPHYLAXIS
     Dosage: 2.5 MG AS NEEDED
     Dates: start: 20090306
  8. MYCOPHENOLATE MOFETIL [Concomitant]
     Dosage: 1000 MG DAILY
     Route: 048
     Dates: start: 20090803
  9. TACROLIMUS [Concomitant]
     Dosage: 2 MG DAILY
     Dates: start: 20090803
  10. DOXAZOSIN [Concomitant]
     Indication: ATHEROSCLEROSIS PROPHYLAXIS
     Dosage: 12 MG DAILY
     Dates: start: 20090803
  11. ASPIRIN [Concomitant]
     Indication: ANTICOAGULANT THERAPY
     Dosage: 325 MG DAILY
     Route: 048
     Dates: start: 20090803
  12. AMLODIPINE [Concomitant]
     Indication: CARDIOVASCULAR EVENT PROPHYLAXIS
     Dosage: 10 MG DAILY
     Route: 048
     Dates: start: 20090803
  13. CARVEDILOL [Concomitant]
     Indication: CARDIOVASCULAR EVENT PROPHYLAXIS
     Dosage: 100 MG DAILY
     Route: 048
     Dates: start: 20090803
  14. CLONIDINE [Concomitant]
     Indication: ATHEROSCLEROSIS PROPHYLAXIS
     Dosage: 3 X 0.3 MG /24 HR DAILY
     Route: 062
     Dates: start: 20090803

REACTIONS (1)
  - ABNORMAL WEIGHT GAIN [None]
